FAERS Safety Report 10049217 (Version 1)
Quarter: 2014Q2

REPORT INFORMATION
  Report Type: Spontaneous
  Country: US (occurrence: US)
  Receive Date: 20140401
  Receipt Date: 20140401
  Transmission Date: 20141212
  Serious: No
  Sender: FDA-Public Use
  Company Number: US-BIOGENIDEC-2014BI029460

PATIENT
  Age: 41 Year
  Sex: Female

DRUGS (14)
  1. TYSABRI [Suspect]
     Indication: MULTIPLE SCLEROSIS
     Route: 042
     Dates: start: 2009, end: 2012
  2. BACLOFEN [Concomitant]
  3. PERCOCET [Concomitant]
  4. ADDERALL [Concomitant]
  5. TERASOZIN [Concomitant]
  6. CLONAZEPAM [Concomitant]
  7. B COMPLEX [Concomitant]
  8. CALCIUM+D3 [Concomitant]
  9. VITAMIN D3 [Concomitant]
  10. FIBER [Concomitant]
  11. CRANBERRY [Concomitant]
  12. PROBIOTIC [Concomitant]
  13. VITAMIN C WITH ROSE HIP [Concomitant]
  14. VITAMIN E [Concomitant]

REACTIONS (1)
  - Urinary tract infection [Unknown]
